FAERS Safety Report 14010224 (Version 6)
Quarter: 2018Q4

REPORT INFORMATION
  Report Type: Report from Study
  Country: US (occurrence: US)
  Receive Date: 20170926
  Receipt Date: 20181123
  Transmission Date: 20190204
  Serious: Yes (Other)
  Sender: FDA-Public Use
  Company Number: PHHY2017US139435

PATIENT
  Age: 21 Year
  Sex: Female

DRUGS (2)
  1. GILENYA [Suspect]
     Active Substance: FINGOLIMOD HYDROCHLORIDE
     Indication: MULTIPLE SCLEROSIS
     Dosage: UNK, QD
     Route: 048
  2. DEPO-PROVERA [Concomitant]
     Active Substance: MEDROXYPROGESTERONE ACETATE
     Indication: CONTRACEPTION
     Dosage: UNK
     Route: 065
     Dates: start: 20170510

REACTIONS (9)
  - Aspartate aminotransferase decreased [Unknown]
  - White blood cell count decreased [Unknown]
  - Blood alkaline phosphatase increased [Unknown]
  - Lentigo [Unknown]
  - Weight increased [Unknown]
  - Lymphocyte count increased [Unknown]
  - Lymphocyte count decreased [Unknown]
  - Cafe au lait spots [Unknown]
  - Melanocytic naevus [Unknown]

NARRATIVE: CASE EVENT DATE: 20170510
